FAERS Safety Report 20492778 (Version 1)
Quarter: 2022Q1

REPORT INFORMATION
  Report Type: Spontaneous
  Country: US (occurrence: US)
  Receive Date: 20220219
  Receipt Date: 20220219
  Transmission Date: 20220423
  Serious: No
  Sender: FDA-Public Use
  Company Number: US-JNJFOC-20220227522

PATIENT
  Age: 36 Year
  Sex: Male

DRUGS (3)
  1. STELARA [Suspect]
     Active Substance: USTEKINUMAB
     Indication: Rheumatoid arthritis
     Route: 058
     Dates: start: 20210102
  2. STELARA [Suspect]
     Active Substance: USTEKINUMAB
  3. ENBREL [Suspect]
     Active Substance: ETANERCEPT

REACTIONS (4)
  - Tremor [Unknown]
  - Feeling jittery [Unknown]
  - Off label use [Unknown]
  - Product use in unapproved indication [Unknown]

NARRATIVE: CASE EVENT DATE: 20220102
